FAERS Safety Report 17075516 (Version 6)
Quarter: 2020Q1

REPORT INFORMATION
  Report Type: Spontaneous
  Country: US (occurrence: US)
  Receive Date: 20191126
  Receipt Date: 20200224
  Transmission Date: 20200409
  Serious: No
  Sender: FDA-Public Use
  Company Number: US-PFIZER INC-2019506973

PATIENT

DRUGS (1)
  1. FENTANYL CITRATE. [Suspect]
     Active Substance: FENTANYL CITRATE
     Indication: PAIN
     Dosage: 150 UG, UNK
     Route: 042

REACTIONS (6)
  - Suspected product tampering [Unknown]
  - Drug ineffective [Unknown]
  - Alcohol interaction [Unknown]
  - Poor quality product administered [Unknown]
  - Product storage error [Unknown]
  - Product container issue [Unknown]
